FAERS Safety Report 8272212-0 (Version None)
Quarter: 2012Q2

REPORT INFORMATION
  Report Type: 
  Country: None (occurrence: None)
  Receive Date: 20120410
  Receipt Date: 20120328
  Transmission Date: 20120825
  Serious: Yes (Other)
  Sender: FDA-Public Use
  Company Number: GR-TEVA-331777ISR

PATIENT
  Age: 44 Year
  Sex: Female

DRUGS (6)
  1. PACLITAXEL [Suspect]
     Indication: METASTASIS
  2. FLUOROURACIL [Suspect]
     Indication: BREAST CANCER
  3. CYCLOPHOSPHAMIDE [Suspect]
     Indication: BREAST CANCER
  4. TRASTUZUMAB FEMARA [Suspect]
     Indication: METASTASIS
  5. FEMARA [Suspect]
     Indication: BREAST CANCER
  6. EPIRUBICIN [Suspect]
     Indication: BREAST CANCER

REACTIONS (6)
  - METASTASES TO EYE [None]
  - HEADACHE [None]
  - VISUAL IMPAIRMENT [None]
  - VISION BLURRED [None]
  - METASTASES TO CENTRAL NERVOUS SYSTEM [None]
  - HEART RATE IRREGULAR [None]
